FAERS Safety Report 6517828-4 (Version None)
Quarter: 2009Q4

REPORT INFORMATION
  Report Type: 
  Country: None (occurrence: None)
  Receive Date: 20091224
  Receipt Date: 20091209
  Transmission Date: 20100525
  Serious: Yes (Hospitalization, Other)
  Sender: FDA-Public Use
  Company Number: PHEH2009US15830

PATIENT
  Sex: Female

DRUGS (2)
  1. EXJADE [Suspect]
     Indication: MYELODYSPLASTIC SYNDROME
     Dosage: 1500 MG, DAILY
     Route: 048
     Dates: start: 20090113
  2. EXJADE [Suspect]
     Indication: IRON OVERLOAD
     Dosage: 1500 MG
     Dates: start: 20091215

REACTIONS (6)
  - DIARRHOEA [None]
  - HERPES SIMPLEX [None]
  - INFLUENZA [None]
  - NEUTROPENIA [None]
  - PYREXIA [None]
  - SERUM FERRITIN INCREASED [None]
